FAERS Safety Report 5283039-6 (Version None)
Quarter: 2007Q1

REPORT INFORMATION
  Report Type: 
  Country: None (occurrence: None)
  Receive Date: 20070328
  Receipt Date: 20070328
  Transmission Date: 20070707
  Serious: Yes (Other)
  Sender: FDA-Public Use
  Company Number: None

PATIENT
  Age: 48 Year
  Sex: Female
  Weight: 87.9978 kg

DRUGS (1)
  1. CEPHALEXIN [Suspect]
     Indication: BACTERIAL INFECTION
     Dosage: 1 CAP 2X DAILY FOR 14 DA PO
     Route: 048
     Dates: start: 20070307, end: 20070316

REACTIONS (6)
  - CONTUSION [None]
  - HAEMORRHAGE [None]
  - PHARYNGOLARYNGEAL PAIN [None]
  - PRURITUS [None]
  - PYREXIA [None]
  - RASH GENERALISED [None]
